FAERS Safety Report 21381437 (Version 2)
Quarter: 2022Q4

REPORT INFORMATION
  Report Type: Report from Study
  Country: GR (occurrence: GR)
  Receive Date: 20220927
  Receipt Date: 20221027
  Transmission Date: 20230113
  Serious: Yes (Hospitalization)
  Sender: FDA-Public Use
  Company Number: GR-ABBVIE-4130423

PATIENT
  Sex: Female
  Weight: 83 kg

DRUGS (2)
  1. CARBIDOPA\LEVODOPA [Suspect]
     Active Substance: CARBIDOPA\LEVODOPA
     Indication: Parkinson^s disease
     Dosage: MORNING DOSE: 0 ML; CONTINUOUS RATE: 1.5 ML/H; EXTRA DOSE: 0 ML
     Route: 050
     Dates: start: 20150316
  2. CARBIDOPA\LEVODOPA [Suspect]
     Active Substance: CARBIDOPA\LEVODOPA
     Dosage: MORNING DOSE: 0.0ML; CONTINUOUS RATE: 1.5ML/H; EXTRA DOSE: 0.0ML (24HR ADMINISTRATION)
     Route: 050

REACTIONS (3)
  - Haematocrit decreased [Recovered/Resolved]
  - Iron deficiency [Recovered/Resolved]
  - Asthenia [Recovered/Resolved]
